FAERS Safety Report 6598097-6 (Version None)
Quarter: 2010Q1

REPORT INFORMATION
  Report Type: 
  Country: None (occurrence: None)
  Receive Date: 20100224
  Receipt Date: 20040331
  Transmission Date: 20100710
  Serious: No
  Sender: FDA-Public Use
  Company Number: US-ALLERGAN-200502616

PATIENT
  Age: 54 Year
  Sex: Female

DRUGS (4)
  1. BOTOX [Suspect]
     Indication: MIGRAINE
     Dosage: 30UNITS, PRN
     Route: 030
     Dates: start: 20050331
  2. CELEBREX [Concomitant]
     Indication: ARTHRITIS
     Route: 048
  3. CLARITIN [Concomitant]
     Indication: HYPERSENSITIVITY
     Route: 048
  4. SINGULAIR [Concomitant]
     Indication: ASTHMA
     Route: 048

REACTIONS (2)
  - FATIGUE [None]
  - HEADACHE [None]
